FAERS Safety Report 17945539 (Version 4)
Quarter: 2020Q3

REPORT INFORMATION
  Report Type: Spontaneous
  Country: IT (occurrence: IT)
  Receive Date: 20200625
  Receipt Date: 20200722
  Transmission Date: 20201103
  Serious: Yes (Hospitalization)
  Sender: FDA-Public Use
  Company Number: NVSC2020IT178274

PATIENT
  Age: 69 Year
  Sex: Female

DRUGS (5)
  1. LOPINAVIR + RITONAVIR [Interacting]
     Active Substance: LOPINAVIR\RITONAVIR
     Indication: COVID-19 PNEUMONIA
  2. LOPINAVIR + RITONAVIR [Interacting]
     Active Substance: LOPINAVIR\RITONAVIR
     Indication: CORONAVIRUS INFECTION
     Dosage: 1 DF (UNK (LOPINAVIR 100 MG, RITONAVIR 25 MG)
     Route: 048
     Dates: start: 2020
  3. HYDROXYCHLOROQUINE [Suspect]
     Active Substance: HYDROXYCHLOROQUINE
     Indication: CORONAVIRUS INFECTION
     Dosage: UNK
     Route: 065
     Dates: start: 2020
  4. APIXABAN [Interacting]
     Active Substance: APIXABAN
     Indication: ATRIAL FIBRILLATION
     Dosage: 5 MG, QD X 2
     Route: 048
     Dates: end: 2020
  5. HYDROXYCHLOROQUINE [Interacting]
     Active Substance: HYDROXYCHLOROQUINE
     Indication: COVID-19 PNEUMONIA

REACTIONS (3)
  - Drug interaction [Unknown]
  - Anticoagulation drug level increased [Unknown]
  - Off label use [Unknown]

NARRATIVE: CASE EVENT DATE: 2020
